FAERS Safety Report 5468786-5 (Version None)
Quarter: 2007Q3

REPORT INFORMATION
  Report Type: 
  Country: None (occurrence: None)
  Receive Date: 20070926
  Receipt Date: 20070914
  Transmission Date: 20080115
  Serious: Yes (Other)
  Sender: FDA-Public Use
  Company Number: FR-PFIZER INC-2007077097

PATIENT
  Age: 22 Year
  Sex: Female

DRUGS (3)
  1. CYTOTEC [Suspect]
     Indication: OFF LABEL USE
     Dates: start: 20070301, end: 20070301
  2. MIFEGYNE [Suspect]
     Dosage: DAILY DOSE:600MG
     Dates: start: 20070227, end: 20070227
  3. VOLTAREN [Concomitant]
     Dates: start: 20070301, end: 20070301

REACTIONS (2)
  - INDUCED ABORTION FAILED [None]
  - OFF LABEL USE [None]
